FAERS Safety Report 14361544 (Version 2)
Quarter: 2018Q2

REPORT INFORMATION
  Report Type: Spontaneous
  Country: FR (occurrence: FR)
  Receive Date: 20180108
  Receipt Date: 20180607
  Transmission Date: 20180711
  Serious: Yes (Hospitalization)
  Sender: FDA-Public Use
  Company Number: FR-ROCHE-2048453

PATIENT
  Age: 19 Year
  Sex: Male

DRUGS (3)
  1. VALIUM [Suspect]
     Active Substance: DIAZEPAM
     Indication: SUICIDAL BEHAVIOUR
     Route: 048
     Dates: start: 20171002, end: 20171009
  2. FLUOXETINE [Suspect]
     Active Substance: FLUOXETINE HYDROCHLORIDE
     Indication: SUICIDAL BEHAVIOUR
     Route: 048
     Dates: start: 20171002, end: 20171009
  3. LOXAPAC [Suspect]
     Active Substance: LOXAPINE
     Indication: SUICIDAL BEHAVIOUR
     Route: 048
     Dates: start: 20171002, end: 20171009

REACTIONS (1)
  - Hepatitis acute [Recovering/Resolving]

NARRATIVE: CASE EVENT DATE: 20171027
